FAERS Safety Report 7405734-2 (Version None)
Quarter: 2011Q2

REPORT INFORMATION
  Report Type: 
  Country: None (occurrence: None)
  Receive Date: 20110411
  Receipt Date: 20110404
  Transmission Date: 20111010
  Serious: Yes (Other)
  Sender: FDA-Public Use
  Company Number: JP-ROCHE-768927

PATIENT

DRUGS (1)
  1. BEVACIZUMAB [Suspect]
     Indication: CHOROIDAL NEOVASCULARISATION
     Dosage: DOSE: 1.25MG PER 0.05 ML.
     Route: 031

REACTIONS (2)
  - INFLAMMATION [None]
  - VITREOUS OPACITIES [None]
